FAERS Safety Report 9231458 (Version 1)
Quarter: 2013Q2

REPORT INFORMATION
  Report Type: Spontaneous
  Country: BR (occurrence: BR)
  Receive Date: 20130415
  Receipt Date: 20130415
  Transmission Date: 20140414
  Serious: Yes (Other)
  Sender: FDA-Public Use
  Company Number: PHHY2013BR035937

PATIENT
  Age: 56 Year
  Sex: Female

DRUGS (1)
  1. RITALINA [Suspect]
     Indication: ATTENTION DEFICIT/HYPERACTIVITY DISORDER
     Dosage: 10 DF (100 MG) DAILY
     Route: 048

REACTIONS (2)
  - Schizophrenia [Unknown]
  - Nervousness [Recovered/Resolved]
